FAERS Safety Report 6335790-4 (Version None)
Quarter: 2009Q3

REPORT INFORMATION
  Report Type: 
  Country: None (occurrence: None)
  Receive Date: 20090828
  Receipt Date: 20090821
  Transmission Date: 20100115
  Serious: Yes (Hospitalization)
  Sender: FDA-Public Use
  Company Number: 362473

PATIENT
  Age: 69 Year
  Sex: Male
  Weight: 49.8 kg

DRUGS (3)
  1. CARBOPLATIN [Suspect]
     Indication: SQUAMOUS CELL CARCINOMA
  2. GEMCITABINE [Concomitant]
  3. ONDANSETRON [Concomitant]

REACTIONS (11)
  - ATELECTASIS [None]
  - BLOOD PRESSURE INCREASED [None]
  - CEREBRAL HAEMORRHAGE [None]
  - CEREBRAL INFARCTION [None]
  - COLLAPSE OF LUNG [None]
  - DISORIENTATION [None]
  - INAPPROPRIATE ANTIDIURETIC HORMONE SECRETION [None]
  - LOSS OF CONSCIOUSNESS [None]
  - LUNG CANCER METASTATIC [None]
  - MALIGNANT PLEURAL EFFUSION [None]
  - METASTASES TO CENTRAL NERVOUS SYSTEM [None]
